FAERS Safety Report 17369188 (Version 1)
Quarter: 2020Q1

REPORT INFORMATION
  Report Type: Spontaneous
  Country: US (occurrence: US)
  Receive Date: 20190907
  Receipt Date: 20190907
  Transmission Date: 20200409
  Serious: Yes (Hospitalization)
  Sender: FDA-Public Use
  Company Number: None

PATIENT
  Age: 18 Year
  Sex: Male

DRUGS (3)
  1. MARIJUANA [Suspect]
     Active Substance: CANNABIS SATIVA SUBSP. INDICA TOP
  2. MIRTAZAPINE. [Concomitant]
     Active Substance: MIRTAZAPINE
  3. JUUL [DEVICE\NICOTINE] [Suspect]
     Active Substance: DEVICE\NICOTINE

REACTIONS (37)
  - Pneumonia [None]
  - Hyperbilirubinaemia [None]
  - Hyperhidrosis [None]
  - Alanine aminotransferase increased [None]
  - Platelet count increased [None]
  - Urine leukocyte esterase positive [None]
  - Pulmonary hypertension [None]
  - Diarrhoea [None]
  - Anxiety [None]
  - Alpha-1 anti-trypsin increased [None]
  - International normalised ratio increased [None]
  - C-reactive protein increased [None]
  - Haptoglobin increased [None]
  - Urobilinogen urine [None]
  - White blood cells urine positive [None]
  - Vomiting [None]
  - Chromaturia [None]
  - Aspartate aminotransferase increased [None]
  - Prothrombin time prolonged [None]
  - Blood fibrinogen increased [None]
  - Hilar lymphadenopathy [None]
  - Gastrointestinal oedema [None]
  - Abdominal pain upper [None]
  - Red blood cell sedimentation rate increased [None]
  - Weight decreased [None]
  - Chest pain [None]
  - Bronchitis [None]
  - Incorrect product administration duration [None]
  - Activated partial thromboplastin time prolonged [None]
  - Serum ferritin increased [None]
  - Restrictive pulmonary disease [None]
  - Lymphadenopathy mediastinal [None]
  - Splenomegaly [None]
  - Blood bilirubin increased [None]
  - Bilirubin conjugated increased [None]
  - Haemoglobin decreased [None]
  - Ascites [None]
